FAERS Safety Report 9683522 (Version 3)
Quarter: 2015Q3

REPORT INFORMATION
  Report Type: Report from Study
  Country: BR (occurrence: BR)
  Receive Date: 20131112
  Receipt Date: 20150820
  Transmission Date: 20151125
  Serious: Yes (Other)
  Sender: FDA-Public Use
  Company Number: PHHY2013BR127143

PATIENT
  Age: 1 Year
  Sex: Male
  Weight: 42 kg

DRUGS (12)
  1. EXJADE [Suspect]
     Active Substance: DEFERASIROX
     Dosage: 1 DF, UNK
     Route: 048
     Dates: start: 200704
  2. BACTRIM [Concomitant]
     Active Substance: SULFAMETHOXAZOLE\TRIMETHOPRIM
     Indication: INFECTION PROPHYLAXIS
     Dosage: 4 DF, QW4 (2 TABLETS ON MONDAY AND 2 TABLETS ON THURSDAYS)
     Route: 048
  3. TACROLIMUS. [Suspect]
     Active Substance: TACROLIMUS
     Indication: IMMUNOSUPPRESSION
     Dosage: 4 DF, QD
     Route: 048
     Dates: start: 201501, end: 201503
  4. MAREVAN [Concomitant]
     Active Substance: WARFARIN SODIUM
     Indication: PRODUCT USED FOR UNKNOWN INDICATION
     Dosage: 2.5 MG, QD
     Route: 065
     Dates: start: 201205
  5. ATENOLOL. [Concomitant]
     Active Substance: ATENOLOL
     Indication: PRODUCT USED FOR UNKNOWN INDICATION
     Dosage: 2 DF, QD
     Route: 048
  6. FLUCONAL [Concomitant]
     Indication: INFECTION PROPHYLAXIS
     Dosage: 1 DF, QD
     Route: 048
     Dates: start: 201501
  7. FOLIC ACID. [Concomitant]
     Active Substance: FOLIC ACID
     Indication: PRODUCT USED FOR UNKNOWN INDICATION
     Dosage: UNK UKN, UNK
     Route: 065
  8. ACYCLOVIR. [Concomitant]
     Active Substance: ACYCLOVIR
     Indication: INFECTION PROPHYLAXIS
     Dosage: 3 DF, QD
     Route: 048
     Dates: start: 201501
  9. MYCOPHENOLATE [Concomitant]
     Active Substance: MYCOPHENOLIC ACID
     Indication: IMMUNOSUPPRESSANT DRUG THERAPY
     Dosage: 2 DF, QD
     Route: 048
     Dates: start: 201503
  10. MAREVAN [Concomitant]
     Active Substance: WARFARIN SODIUM
     Dosage: 5 MG, QW (ON WEDNESDAYS)
     Route: 065
     Dates: start: 201305
  11. PREDNISONE. [Concomitant]
     Active Substance: PREDNISONE
     Indication: IMMUNOSUPPRESSANT DRUG THERAPY
     Dosage: 1 DF, QD
     Route: 048
  12. EXJADE [Suspect]
     Active Substance: DEFERASIROX
     Indication: THALASSAEMIA BETA
     Dosage: 1 DF, UNK
     Route: 048
     Dates: start: 20060427

REACTIONS (7)
  - Intracardiac thrombus [Recovered/Resolved]
  - Seizure [Recovered/Resolved]
  - Poor venous access [Unknown]
  - Hepatic siderosis [Unknown]
  - Serum ferritin decreased [Recovered/Resolved]
  - Off label use [Unknown]
  - Serum ferritin increased [Recovered/Resolved]

NARRATIVE: CASE EVENT DATE: 20060427
